FAERS Safety Report 12573180 (Version 1)
Quarter: 2016Q3

REPORT INFORMATION
  Report Type: Spontaneous
  Country: GB (occurrence: GB)
  Receive Date: 20160720
  Receipt Date: 20160720
  Transmission Date: 20161109
  Serious: Yes (Hospitalization)
  Sender: FDA-Public Use
  Company Number: GB-DEXPHARM-20161550

PATIENT
  Age: 57 Year
  Sex: Male

DRUGS (10)
  1. OMEPRAZOLE. [Suspect]
     Active Substance: OMEPRAZOLE
  2. ATENOLOL. [Concomitant]
     Active Substance: ATENOLOL
     Dosage: DAILY DOSE: 50 MG MILLGRAM(S) EVERY DAYS
  3. VITAMIN B COMPOUND STRONG [Concomitant]
     Dosage: DAILY DOSE: 1 DF DOSAGE FORM EVERY DAYS
  4. ALLOPURINOL. [Concomitant]
     Active Substance: ALLOPURINOL
     Dosage: DAILY DOSE: 100 MG MILLGRAM(S) EVERY DAYS
  5. FLUOXETINE [Concomitant]
     Active Substance: FLUOXETINE HYDROCHLORIDE
     Dosage: DAILY DOSE: 60 MG MILLGRAM(S) EVERY DAYS
  6. FUROSEMIDE. [Concomitant]
     Active Substance: FUROSEMIDE
     Dosage: DAILY DOSE: 40 MG MILLGRAM(S) EVERY DAYS
  7. BUSPIRONE [Concomitant]
     Active Substance: BUSPIRONE HYDROCHLORIDE
     Dosage: DAILY DOSE: 30 MG MILLGRAM(S) EVERY DAYS
  8. COCODAMOL [Concomitant]
     Active Substance: ACETAMINOPHEN\CODEINE PHOSPHATE
     Dosage: 30MG/500MG. 1-2 EVERY 4-6 HOURS. REGULARLY 2, 4 TIMES A DAY.
  9. RAMIPRIL. [Concomitant]
     Active Substance: RAMIPRIL
     Dosage: DAILY DOSE: 2.5 MG MILLGRAM(S) EVERY DAYS
  10. THIAMINE. [Concomitant]
     Active Substance: THIAMINE
     Dosage: DAILY DOSE: 200 MG MILLGRAM(S) EVERY DAYS

REACTIONS (1)
  - Stevens-Johnson syndrome [Unknown]
